FAERS Safety Report 9512397 (Version 1)
Quarter: 2013Q1

REPORT INFORMATION
  Report Type: Spontaneous
  Country: US (occurrence: None)
  Receive Date: 20130305
  Receipt Date: 20130305
  Transmission Date: 20140127
  Serious: Yes (Disabling)
  Sender: FDA-Public Use
  Company Number: 163-21880-12103125

PATIENT
  Age: 70 Year
  Sex: Female

DRUGS (8)
  1. REVLIMID (LENALIDOMIDE) (CAPSULES) [Suspect]
     Indication: PLASMA CELL MYELOMA
     Dosage: 25 MG, 21 IN 21 D, PO
     Dates: start: 201209
  2. CALCIUM (CALCIUM) [Concomitant]
  3. CENTRUM (CENTRUM) [Concomitant]
  4. DEXAMETHASONE (DEXAMETHASONE) [Concomitant]
  5. MAGNESIUM (MAGNESIUM) [Concomitant]
  6. PROBIOTIC (BIFIDOBACTERIUM LACTIS) [Concomitant]
  7. VITAMIN B-12 (CYANOCOBALAMIN) [Concomitant]
  8. VITAMIN D (ERGOCALCIFEROL) [Concomitant]

REACTIONS (1)
  - Affective disorder [None]
